FAERS Safety Report 9902904 (Version 1)
Quarter: 2014Q1

REPORT INFORMATION
  Report Type: Spontaneous
  Country: DE (occurrence: DE)
  Receive Date: 20140217
  Receipt Date: 20140217
  Transmission Date: 20141002
  Serious: Yes (Other)
  Sender: FDA-Public Use
  Company Number: PHHY2014DE018022

PATIENT
  Sex: Male

DRUGS (1)
  1. IMMUNOSPORIN [Suspect]
     Indication: PSORIASIS
     Dates: start: 2013

REACTIONS (4)
  - Viral infection [Unknown]
  - Ear injury [Not Recovered/Not Resolved]
  - Hearing impaired [Not Recovered/Not Resolved]
  - Balance disorder [Not Recovered/Not Resolved]
